FAERS Safety Report 11497677 (Version 2)
Quarter: 2016Q4

REPORT INFORMATION
  Report Type: Spontaneous
  Country: US (occurrence: US)
  Receive Date: 20150911
  Receipt Date: 20161216
  Transmission Date: 20170206
  Serious: Yes (Other)
  Sender: FDA-Public Use
  Company Number: US-ELI_LILLY_AND_COMPANY-US201509002709

PATIENT
  Sex: Female
  Weight: 107.94 kg

DRUGS (2)
  1. CYMBALTA [Suspect]
     Active Substance: DULOXETINE HYDROCHLORIDE
     Indication: BIPOLAR DISORDER
  2. CYMBALTA [Suspect]
     Active Substance: DULOXETINE HYDROCHLORIDE
     Indication: DEPRESSION
     Dosage: 60 MG, EACH EVENING
     Route: 048

REACTIONS (14)
  - Suicidal ideation [Unknown]
  - Affect lability [Unknown]
  - Anxiety [Unknown]
  - Dysphoria [Unknown]
  - Agitation [Unknown]
  - Mood swings [Unknown]
  - Sleep disorder [Unknown]
  - Irritability [Unknown]
  - Paraesthesia [Unknown]
  - Withdrawal syndrome [Unknown]
  - Lethargy [Unknown]
  - Fatigue [Unknown]
  - Insomnia [Unknown]
  - Vertigo [Unknown]
